FAERS Safety Report 8171360-3 (Version None)
Quarter: 2012Q1

REPORT INFORMATION
  Report Type: 
  Country: None (occurrence: None)
  Receive Date: 20120228
  Receipt Date: 20120222
  Transmission Date: 20120608
  Serious: Yes (Other)
  Sender: FDA-Public Use
  Company Number: US-PFIZER INC-2012008998

PATIENT
  Sex: Female
  Weight: 77.098 kg

DRUGS (8)
  1. AMLODIPINE [Concomitant]
     Dosage: 10 MG, 1X/DAY
  2. LIPITOR [Suspect]
     Indication: BLOOD CHOLESTEROL INCREASED
     Dosage: UNK, 1X/DAY
     Route: 048
     Dates: start: 20070101
  3. LOVAZA [Concomitant]
     Dosage: UNK
  4. PHENOBARBITAL TAB [Concomitant]
     Dosage: 130 MG, 1X/DAY
  5. HYDROCHLOROTHIAZIDE [Concomitant]
     Dosage: UNK
  6. METOPROLOL [Concomitant]
     Dosage: 25 MG, 1X/DAY
  7. COUMADIN [Concomitant]
     Dosage: 5 MG, UNK
  8. CELEBREX [Suspect]
     Indication: OSTEOARTHRITIS
     Dosage: 200 MG, 1X/DAY
     Route: 048
     Dates: start: 20070101

REACTIONS (3)
  - PNEUMONIA LEGIONELLA [None]
  - ATRIAL FIBRILLATION [None]
  - BREAST CANCER [None]
